FAERS Safety Report 6306560-8 (Version None)
Quarter: 2009Q3

REPORT INFORMATION
  Report Type: 
  Country: None (occurrence: None)
  Receive Date: 20090812
  Receipt Date: 20090803
  Transmission Date: 20100115
  Serious: Yes (Hospitalization)
  Sender: FDA-Public Use
  Company Number: A0763964B

PATIENT
  Sex: Male
  Weight: 81.8 kg

DRUGS (5)
  1. BLINDED TRIAL MEDICATION [Suspect]
     Route: 048
     Dates: start: 20090106
  2. CISPLATIN [Suspect]
     Dosage: 203MG CYCLIC
     Route: 042
     Dates: start: 20090203, end: 20090203
  3. RADIOTHERAPY [Suspect]
     Dosage: 8GY VARIABLE DOSE
     Route: 061
     Dates: start: 20090113
  4. ONDANSETRON [Suspect]
     Indication: VOMITING
     Dosage: 8MG TWICE PER DAY
     Dates: start: 20090202, end: 20090203
  5. FENTANYL [Concomitant]
     Route: 061
     Dates: start: 20090220

REACTIONS (4)
  - CONSTIPATION [None]
  - NAUSEA [None]
  - PYREXIA [None]
  - VOMITING [None]
